FAERS Safety Report 10753160 (Version 3)
Quarter: 2015Q1

REPORT INFORMATION
  Report Type: Spontaneous
  Country: US (occurrence: US)
  Receive Date: 20150130
  Receipt Date: 20150319
  Transmission Date: 20150721
  Serious: No
  Sender: FDA-Public Use
  Company Number: US-PFIZER INC-2015040355

PATIENT
  Age: 58 Year
  Sex: Female
  Weight: 61.22 kg

DRUGS (1)
  1. AZITHROMYCIN [Suspect]
     Active Substance: AZITHROMYCIN ANHYDROUS
     Indication: UPPER RESPIRATORY TRACT INFECTION
     Dosage: 250 MG X 2 FIRST DAY, 250 MG X 1 SECOND DAY
     Dates: start: 20150126, end: 20150127

REACTIONS (2)
  - Drug hypersensitivity [Unknown]
  - Malaise [Unknown]

NARRATIVE: CASE EVENT DATE: 201501
